FAERS Safety Report 6503034-6 (Version None)
Quarter: 2009Q4

REPORT INFORMATION
  Report Type: 
  Country: None (occurrence: None)
  Receive Date: 20091127
  Receipt Date: 20090831
  Transmission Date: 20100525
  Serious: Yes (Other)
  Sender: FDA-Public Use
  Company Number: WAES 0908USA05034

PATIENT
  Sex: Female

DRUGS (1)
  1. FOSAMAX [Suspect]

REACTIONS (4)
  - FRACTURE [None]
  - JAW DISORDER [None]
  - OSTEONECROSIS [None]
  - VIITH NERVE INJURY [None]
